FAERS Safety Report 21678231 (Version 4)
Quarter: 2022Q4

REPORT INFORMATION
  Report Type: Report from Study
  Country: US (occurrence: US)
  Receive Date: 20221203
  Receipt Date: 20221226
  Transmission Date: 20230113
  Serious: No
  Sender: FDA-Public Use
  Company Number: US-002147023-NVSC2022US280800

PATIENT
  Sex: Female

DRUGS (1)
  1. ENTRESTO [Suspect]
     Active Substance: SACUBITRIL\VALSARTAN
     Indication: Product used for unknown indication
     Dosage: 1 DOSAGE FORM, BID
     Route: 048

REACTIONS (7)
  - Arthralgia [Unknown]
  - Pollakiuria [Unknown]
  - Abdominal pain upper [Unknown]
  - Insomnia [Unknown]
  - Nausea [Unknown]
  - Dizziness [Unknown]
  - Wrong technique in product usage process [Unknown]
